FAERS Safety Report 16454095 (Version 7)
Quarter: 2020Q1

REPORT INFORMATION
  Report Type: Report from Study
  Country: CN (occurrence: CN)
  Receive Date: 20190619
  Receipt Date: 20200114
  Transmission Date: 20200409
  Serious: Yes (Hospitalization)
  Sender: FDA-Public Use
  Company Number: CN-PFIZER INC-2019257841

PATIENT
  Age: 68 Year
  Sex: Male
  Weight: 70 kg

DRUGS (5)
  1. HERBAL NOS [Concomitant]
     Active Substance: HERBALS
     Indication: GASTROOESOPHAGEAL REFLUX DISEASE
     Dosage: 1 SPOON TWICE
     Route: 048
     Dates: start: 20190522
  2. ENZALUTAMIDE [Suspect]
     Active Substance: ENZALUTAMIDE
     Indication: PROSTATE CANCER
     Dosage: 480 MG, SINGLE
     Route: 048
  3. ESTRAMUSTINE SODIUM PHOSPHATE [Suspect]
     Active Substance: ESTRAMUSTINE PHOSPHATE SODIUM
     Indication: PROSTATIC SPECIFIC ANTIGEN INCREASED
     Dosage: 280 MG, 2X/DAY
     Route: 048
     Dates: start: 20190601, end: 20190614
  4. ESTRAMUSTINE SODIUM PHOSPHATE [Suspect]
     Active Substance: ESTRAMUSTINE PHOSPHATE SODIUM
     Dosage: 280 MG, 1X/DAY
     Route: 048
     Dates: start: 20190617, end: 20190702
  5. ENZALUTAMIDE [Suspect]
     Active Substance: ENZALUTAMIDE
     Indication: PROSTATE CANCER
     Dosage: UNK
     Route: 065
     Dates: start: 20150825

REACTIONS (3)
  - Myocardial infarction [Recovered/Resolved]
  - Bone pain [Recovering/Resolving]
  - Abdominal discomfort [Not Recovered/Not Resolved]

NARRATIVE: CASE EVENT DATE: 20190527
